FAERS Safety Report 6173801-X (Version None)
Quarter: 2009Q2

REPORT INFORMATION
  Report Type: 
  Country: None (occurrence: None)
  Receive Date: 20090429
  Receipt Date: 20090429
  Transmission Date: 20091009
  Serious: Yes (Life-Threatening, Hospitalization, Other)
  Sender: FDA-Public Use
  Company Number: None

PATIENT
  Age: 74 Year
  Sex: Female
  Weight: 63.5036 kg

DRUGS (2)
  1. GEMFIBROZIL [Suspect]
     Indication: BLOOD TRIGLYCERIDES INCREASED
     Dosage: 600 MG TWICE PER DAY PO
     Route: 048
     Dates: start: 20090323, end: 20090326
  2. TARGRETIN [Suspect]
     Indication: T-CELL LYMPHOMA
     Dosage: 300 MG TWICE PER DAY PO
     Route: 048

REACTIONS (11)
  - ANOREXIA [None]
  - ASTHENIA [None]
  - BLOOD TRIGLYCERIDES INCREASED [None]
  - CHILLS [None]
  - DIZZINESS [None]
  - DRUG INTERACTION [None]
  - DYSSTASIA [None]
  - GAIT DISTURBANCE [None]
  - HALLUCINATION [None]
  - INCOHERENT [None]
  - TREMOR [None]
